FAERS Safety Report 9156248 (Version 1)
Quarter: 2013Q1

REPORT INFORMATION
  Report Type: Spontaneous
  Country: US (occurrence: US)
  Receive Date: 20130123
  Receipt Date: 20130123
  Transmission Date: 20140127
  Serious: No
  Sender: FDA-Public Use
  Company Number: US-BRACCO-007290

PATIENT
  Sex: Male

DRUGS (2)
  1. MULTIHANCE [Suspect]
     Indication: NUCLEAR MAGNETIC RESONANCE IMAGING
     Route: 042
     Dates: start: 20111216, end: 20111216
  2. MULTIHANCE [Suspect]
     Indication: NECK PAIN
     Route: 042
     Dates: start: 20111216, end: 20111216

REACTIONS (3)
  - Loss of consciousness [Recovered/Resolved]
  - Dizziness [Unknown]
  - Nausea [Unknown]
